FAERS Safety Report 18313116 (Version 1)
Quarter: 2020Q3

REPORT INFORMATION
  Report Type: Spontaneous
  Country: BE (occurrence: BE)
  Receive Date: 20200925
  Receipt Date: 20200925
  Transmission Date: 20201103
  Serious: Yes (Other)
  Sender: FDA-Public Use
  Company Number: BE-PFIZER INC-2020367997

PATIENT
  Age: 69 Year

DRUGS (13)
  1. XALATAN [Suspect]
     Active Substance: LATANOPROST
     Dosage: UNK
     Route: 061
  2. REMICADE [Suspect]
     Active Substance: INFLIXIMAB
     Indication: COLITIS ULCERATIVE
     Dosage: UNK
     Route: 065
  3. CORTISON [Concomitant]
     Active Substance: CORTISONE ACETATE
     Dosage: UNK
     Route: 065
  4. FLIXABI [Suspect]
     Active Substance: INFLIXIMAB
     Indication: COLITIS ULCERATIVE
     Dosage: UNK
     Route: 042
     Dates: start: 201801
  5. SINTROM [Concomitant]
     Active Substance: ACENOCOUMAROL
     Dosage: UNK
     Route: 065
  6. MONOPROST [Concomitant]
     Active Substance: LATANOPROST
     Dosage: 1 UNK, 1X/DAY, DOSE? ONE, ODS
     Route: 065
  7. TERRACORTRIL [Concomitant]
     Dosage: 1 UNK, 1X/DAY, DOSE? ONE, ODS
     Route: 065
  8. COSOPT [Suspect]
     Active Substance: DORZOLAMIDE HYDROCHLORIDE\TIMOLOL MALEATE
     Dosage: 1 UNK, 1X/DAY, DOSE? TWO
     Route: 065
  9. AZITHROMYCINE [Concomitant]
     Active Substance: AZITHROMYCIN
     Dosage: UNK
     Route: 065
  10. BLEPHACLEAN [Concomitant]
     Dosage: 1 UNK, 1X/DAY, TWO?THREE, ODS
     Route: 065
  11. CYCLOSPORIN [Concomitant]
     Active Substance: CYCLOSPORINE
     Dosage: 1 UNK, 1X/DAY, DOSE? ONE, ODS
     Route: 065
  12. FLIXABI [Suspect]
     Active Substance: INFLIXIMAB
     Indication: UVEITIS
     Dosage: UNK
  13. IMURAN [Suspect]
     Active Substance: AZATHIOPRINE
     Indication: COLITIS ULCERATIVE
     Dosage: UNK
     Route: 065

REACTIONS (14)
  - Conjunctivochalasis [Unknown]
  - Iris transillumination defect [Unknown]
  - Blepharitis [Unknown]
  - Noninfective conjunctivitis [Unknown]
  - Vitritis [Unknown]
  - Meniscus injury [Unknown]
  - Eye irritation [Unknown]
  - Eyelid disorder [Unknown]
  - Product use in unapproved indication [Unknown]
  - Skin papilloma [Unknown]
  - Meibomianitis [Unknown]
  - Eyelid ptosis [Unknown]
  - Telangiectasia [Unknown]
  - Eye pain [Unknown]

NARRATIVE: CASE EVENT DATE: 20200513
